FAERS Safety Report 10579070 (Version 8)
Quarter: 2015Q2

REPORT INFORMATION
  Report Type: Spontaneous
  Country: US (occurrence: US)
  Receive Date: 20141112
  Receipt Date: 20150424
  Transmission Date: 20150821
  Serious: Yes (Hospitalization, Other)
  Sender: FDA-Public Use
  Company Number: US-UNITED THERAPEUTICS-UNT-2014-010685

PATIENT
  Sex: Female
  Weight: 86.17 kg

DRUGS (14)
  1. ORENITRAM [Suspect]
     Active Substance: TREPROSTINIL
     Dosage: 2 MG, Q8H
     Route: 048
  2. ORENITRAM [Suspect]
     Active Substance: TREPROSTINIL
     Dosage: 1.25 MG, QD
     Route: 048
     Dates: start: 20140829
  3. ORENITRAM [Suspect]
     Active Substance: TREPROSTINIL
     Dosage: 1.5 MG, TID
     Route: 048
     Dates: start: 20140829
  4. ORENITRAM [Suspect]
     Active Substance: TREPROSTINIL
     Dosage: 7 MG, BID
     Route: 048
  5. ORENITRAM [Suspect]
     Active Substance: TREPROSTINIL
     Indication: PULMONARY HYPERTENSION
     Dosage: 4 MG, BID
     Route: 048
     Dates: start: 20140730
  6. LETAIRIS [Concomitant]
     Active Substance: AMBRISENTAN
     Indication: PRODUCT USED FOR UNKNOWN INDICATION
  7. ASPIRIN                            /00002701/ [Concomitant]
     Active Substance: ASPIRIN
     Indication: PRODUCT USED FOR UNKNOWN INDICATION
     Dosage: 81 MG
  8. ADCIRCA [Concomitant]
     Active Substance: TADALAFIL
     Indication: PRODUCT USED FOR UNKNOWN INDICATION
  9. ORENITRAM [Suspect]
     Active Substance: TREPROSTINIL
     Dosage: 1.5 MG, TID
     Route: 048
     Dates: start: 20140829
  10. ORENITRAM [Suspect]
     Active Substance: TREPROSTINIL
     Dosage: 4 MG, QAM
     Route: 048
  11. ORENITRAM [Suspect]
     Active Substance: TREPROSTINIL
     Dosage: 2 MG, QD (IN AFTERNOON)
     Route: 048
  12. ORENITRAM [Suspect]
     Active Substance: TREPROSTINIL
     Dosage: 1MG,TID
     Route: 048
     Dates: start: 20140829
  13. ORENITRAM [Suspect]
     Active Substance: TREPROSTINIL
     Dosage: 1 MG, BID
     Route: 048
     Dates: start: 20140829
  14. PREDNISONE. [Suspect]
     Active Substance: PREDNISONE
     Indication: PRODUCT USED FOR UNKNOWN INDICATION
     Dosage: UNK

REACTIONS (19)
  - Oesophagitis [Unknown]
  - Muscle spasms [Unknown]
  - Migraine [Unknown]
  - Drug intolerance [Unknown]
  - Constipation [Unknown]
  - Scoliosis [Unknown]
  - Myalgia [Unknown]
  - Arthritis [Unknown]
  - Gastrooesophageal reflux disease [Unknown]
  - Pneumonia aspiration [Recovering/Resolving]
  - Headache [Unknown]
  - Vomiting [Unknown]
  - Aspiration [Unknown]
  - Muscular weakness [Unknown]
  - Oedema [Unknown]
  - Arthralgia [Unknown]
  - Systemic lupus erythematosus [Unknown]
  - Scleroderma [Unknown]
  - Decreased appetite [Unknown]

NARRATIVE: CASE EVENT DATE: 2014
